FAERS Safety Report 24105332 (Version 2)
Quarter: 2024Q3

REPORT INFORMATION
  Report Type: Spontaneous
  Country: JP (occurrence: JP)
  Receive Date: 20240717
  Receipt Date: 20240821
  Transmission Date: 20241017
  Serious: Yes (Other)
  Sender: Phathom Pharmaceuticals
  Company Number: JP-PHATHOM PHARMACEUTICALS INC.-2024PHT00553

PATIENT
  Age: 9 Decade
  Sex: Male

DRUGS (1)
  1. VONOPRAZAN FUMARATE [Suspect]
     Active Substance: VONOPRAZAN FUMARATE
     Indication: Gastrooesophageal reflux disease
     Dosage: 20 MG
     Route: 048
     Dates: start: 20240501, end: 20240606

REACTIONS (3)
  - Impaired gastric emptying [Recovered/Resolved]
  - Pyloric stenosis [Unknown]
  - Gastric hypomotility [Unknown]

NARRATIVE: CASE EVENT DATE: 20240401
